FAERS Safety Report 10015449 (Version 3)
Quarter: 2014Q3

REPORT INFORMATION
  Report Type: Report from Study
  Country: US (occurrence: US)
  Receive Date: 20140317
  Receipt Date: 20140723
  Transmission Date: 20150326
  Serious: Yes (Death, Other)
  Sender: FDA-Public Use
  Company Number: US-ASTELLAS-2014EU002184

PATIENT
  Age: 80 Year
  Sex: Male

DRUGS (15)
  1. CORTISONE [Concomitant]
     Active Substance: CORTISONE\HYDROCORTISONE
     Indication: OSTEOARTHRITIS
     Route: 030
     Dates: start: 20130412
  2. FUROSEMIDE. [Concomitant]
     Active Substance: FUROSEMIDE
     Indication: OEDEMA
     Route: 048
     Dates: start: 20131202
  3. ENZALUTAMIDE [Suspect]
     Active Substance: ENZALUTAMIDE
     Indication: PROSTATE CANCER
     Dosage: UNK UNK, ONCE DAILY
     Route: 048
     Dates: start: 20130108, end: 20131120
  4. AMIODARONE [Concomitant]
     Active Substance: AMIODARONE
     Indication: PROPHYLAXIS
     Route: 048
     Dates: start: 20131202
  5. LORATADINE. [Concomitant]
     Active Substance: LORATADINE
     Indication: SEASONAL ALLERGY
     Route: 048
     Dates: start: 20131202
  6. ASPIRIN. [Concomitant]
     Active Substance: ASPIRIN
     Indication: PROPHYLAXIS
     Route: 048
     Dates: start: 1995
  7. MULTIVITAMIN                       /00097801/ [Concomitant]
     Active Substance: VITAMINS
     Indication: VITAMIN SUPPLEMENTATION
     Route: 048
     Dates: start: 1995
  8. OSTEO BI-FLEX [Concomitant]
     Active Substance: CHONDROITIN SULFATE A\GLUCOSAMINE
     Indication: ARTHRITIS
     Route: 065
     Dates: start: 2000
  9. CARBAMIDE PEROXIDE [Concomitant]
     Active Substance: CARBAMIDE PEROXIDE
     Indication: CERUMEN IMPACTION
     Route: 065
     Dates: start: 20121202
  10. ENZALUTAMIDE [Suspect]
     Active Substance: ENZALUTAMIDE
     Dosage: UNK UNK, ONCE DAILY
     Route: 048
     Dates: start: 20131211
  11. METOPROLOL TARTRATE. [Concomitant]
     Active Substance: METOPROLOL TARTRATE
     Indication: HYPERTENSION
     Route: 048
     Dates: start: 20131202
  12. TRAZODONE [Concomitant]
     Active Substance: TRAZODONE HYDROCHLORIDE
     Indication: DEPRESSION
     Route: 048
     Dates: start: 20131202
  13. LATANOPROST. [Concomitant]
     Active Substance: LATANOPROST
     Indication: GLAUCOMA
     Dosage: 0.0005 %, UID/QD
     Route: 047
     Dates: start: 2007
  14. DIPHENHYDRAMINE [Concomitant]
     Active Substance: DIPHENHYDRAMINE
     Indication: INSOMNIA
     Route: 048
     Dates: start: 20131120
  15. FEXOFENADINE HYDROCHLORIDE. [Concomitant]
     Active Substance: FEXOFENADINE HYDROCHLORIDE
     Indication: SEASONAL ALLERGY
     Route: 048
     Dates: start: 20130201

REACTIONS (1)
  - Colon cancer metastatic [Fatal]

NARRATIVE: CASE EVENT DATE: 20140305
